FAERS Safety Report 11533640 (Version 1)
Quarter: 2015Q3

REPORT INFORMATION
  Report Type: Spontaneous
  Country: IN (occurrence: IN)
  Receive Date: 20150921
  Receipt Date: 20150921
  Transmission Date: 20151125
  Serious: Yes (Life-Threatening, Hospitalization)
  Sender: FDA-Public Use
  Company Number: IN-COREPHARMA LLC-2015COR00199

PATIENT
  Age: 41 Year
  Sex: Female

DRUGS (2)
  1. GLYBURIDE. [Suspect]
     Active Substance: GLYBURIDE
     Dosage: 500 MG, ONCE
     Route: 048
  2. PHENYTOIN. [Suspect]
     Active Substance: PHENYTOIN
     Dosage: 20 G, ONCE
     Route: 048

REACTIONS (2)
  - Cardiotoxicity [Recovered/Resolved]
  - Drug interaction [Recovered/Resolved]
